FAERS Safety Report 9571524 (Version 3)
Quarter: 2013Q4

REPORT INFORMATION
  Report Type: Spontaneous
  Country: US (occurrence: US)
  Receive Date: 20131001
  Receipt Date: 20131227
  Transmission Date: 20140711
  Serious: Yes (Other)
  Sender: FDA-Public Use
  Company Number: US-AMGEN-USASP2013067972

PATIENT
  Age: 63 Year
  Sex: Female
  Weight: 48.98 kg

DRUGS (3)
  1. PROLIA [Suspect]
     Indication: OSTEOPOROSIS POSTMENOPAUSAL
     Dosage: 60 MG, Q6MO
     Route: 058
     Dates: start: 20130321
  2. ZIAC                               /01166101/ [Concomitant]
     Indication: HYPERTENSION
  3. SYNTHROID [Concomitant]

REACTIONS (8)
  - Hypersensitivity [Unknown]
  - Rash generalised [Unknown]
  - Rash papular [Unknown]
  - Skin warm [Unknown]
  - Rash pruritic [Unknown]
  - Contusion [Unknown]
  - Dermatitis [Not Recovered/Not Resolved]
  - Urticaria [Unknown]
